FAERS Safety Report 7103800-2 (Version None)
Quarter: 2010Q4

REPORT INFORMATION
  Report Type: 
  Country: None (occurrence: None)
  Receive Date: 20101115
  Receipt Date: 20101108
  Transmission Date: 20110411
  Serious: Yes (Other)
  Sender: FDA-Public Use
  Company Number: CN-PFIZER INC-2010141986

PATIENT
  Age: 20 Year
  Sex: Female

DRUGS (1)
  1. SILDENAFIL CITRATE [Suspect]
     Indication: PULMONARY ARTERIAL HYPERTENSION
     Dosage: HALF A TABLET
     Route: 048
     Dates: start: 20101008

REACTIONS (1)
  - PULMONARY ARTERIAL PRESSURE INCREASED [None]
